FAERS Safety Report 8459640-5 (Version None)
Quarter: 2012Q2

REPORT INFORMATION
  Report Type: 
  Country: None (occurrence: None)
  Receive Date: 20120622
  Receipt Date: 20120523
  Transmission Date: 20120825
  Serious: Yes (Other)
  Sender: FDA-Public Use
  Company Number: US-GLAXOSMITHKLINE-B0804999A

PATIENT

DRUGS (1)
  1. PAZOPANIB [Suspect]
     Indication: SMALL CELL LUNG CANCER STAGE UNSPECIFIED
     Dosage: 800MG PER DAY
     Route: 065

REACTIONS (4)
  - DIARRHOEA [None]
  - NAUSEA [None]
  - TOXICITY TO VARIOUS AGENTS [None]
  - FATIGUE [None]
